FAERS Safety Report 7216683-7 (Version None)
Quarter: 2011Q1

REPORT INFORMATION
  Report Type: 
  Country: None (occurrence: None)
  Receive Date: 20110110
  Receipt Date: 20101227
  Transmission Date: 20110831
  Serious: No
  Sender: FDA-Public Use
  Company Number: US-BIOGENIDEC-2011BI000457

PATIENT
  Age: 58 Year
  Sex: Female

DRUGS (2)
  1. TYSABRI [Suspect]
     Indication: MULTIPLE SCLEROSIS
     Route: 042
     Dates: start: 20100723
  2. TYSABRI [Suspect]
     Route: 042
     Dates: start: 20070223, end: 20071102

REACTIONS (3)
  - MULTIPLE SCLEROSIS [None]
  - URINARY TRACT INFECTION [None]
  - PERSONALITY CHANGE [None]
